FAERS Safety Report 10507890 (Version 2)
Quarter: 2014Q4

REPORT INFORMATION
  Report Type: Report from Study
  Country: US (occurrence: US)
  Receive Date: 20141009
  Receipt Date: 20141023
  Transmission Date: 20150528
  Serious: Yes (Other)
  Sender: FDA-Public Use
  Company Number: GXBR2014US002180

PATIENT
  Sex: Female

DRUGS (2)
  1. ITRACONAZOLE CAPSULES [Suspect]
     Active Substance: ITRACONAZOLE
     Indication: FUNGAL INFECTION
     Dosage: UNK
     Dates: start: 2014
  2. COPAXONE [Suspect]
     Active Substance: GLATIRAMER ACETATE
     Indication: MULTIPLE SCLEROSIS
     Dosage: 40 MG, UNK
     Route: 065
     Dates: start: 20140713

REACTIONS (2)
  - Seizure [Unknown]
  - Wound infection fungal [Not Recovered/Not Resolved]
